FAERS Safety Report 17948251 (Version 1)
Quarter: 2020Q2

REPORT INFORMATION
  Report Type: Spontaneous
  Country: US (occurrence: US)
  Receive Date: 20200625
  Receipt Date: 20200625
  Transmission Date: 20200714
  Serious: No
  Sender: FDA-Public Use
  Company Number: None

PATIENT
  Sex: Female

DRUGS (1)
  1. SODIUM CITRATE 4% 250ML [Suspect]
     Active Substance: SODIUM CITRATE

REACTIONS (2)
  - Product formulation issue [None]
  - Anaphylactic reaction [None]

NARRATIVE: CASE EVENT DATE: 20200215
